FAERS Safety Report 13238944 (Version 1)
Quarter: 2017Q1

REPORT INFORMATION
  Report Type: Spontaneous
  Country: US (occurrence: US)
  Receive Date: 20170216
  Receipt Date: 20170216
  Transmission Date: 20170428
  Serious: No
  Sender: FDA-Public Use
  Company Number: US-VERTEX PHARMACEUTICALS-2017-000790

PATIENT
  Sex: Male

DRUGS (10)
  1. MULTIVITAMIN [Concomitant]
     Active Substance: VITAMINS
  2. SYMBICORT [Concomitant]
     Active Substance: BUDESONIDE\FORMOTEROL FUMARATE DIHYDRATE
  3. VITAMIN D3 [Concomitant]
     Active Substance: CHOLECALCIFEROL
  4. LEVAQUIN [Concomitant]
     Active Substance: LEVOFLOXACIN
  5. ORKAMBI [Suspect]
     Active Substance: IVACAFTOR\LUMACAFTOR
     Indication: CYSTIC FIBROSIS
     Dosage: 2 DF (200-125MG EACH), BID
     Route: 048
     Dates: start: 20151124
  6. TOBI [Concomitant]
     Active Substance: TOBRAMYCIN
  7. URSODIOL. [Concomitant]
     Active Substance: URSODIOL
  8. PULMOZYME [Concomitant]
     Active Substance: DORNASE ALFA
  9. ALBUTEROL. [Concomitant]
     Active Substance: ALBUTEROL
  10. CREON [Concomitant]
     Active Substance: PANCRELIPASE AMYLASE\PANCRELIPASE LIPASE\PANCRELIPASE PROTEASE

REACTIONS (1)
  - Sinus disorder [Unknown]
